FAERS Safety Report 16201572 (Version 1)
Quarter: 2019Q2

REPORT INFORMATION
  Report Type: Spontaneous
  Country: US (occurrence: US)
  Receive Date: 20190416
  Receipt Date: 20190416
  Transmission Date: 20190711
  Serious: No
  Sender: FDA-Public Use
  Company Number: US-BION-007816

PATIENT
  Age: 80 Year
  Sex: Female
  Weight: 91 kg

DRUGS (4)
  1. PEPCID AC [Concomitant]
     Active Substance: FAMOTIDINE
  2. LATANOPROST. [Concomitant]
     Active Substance: LATANOPROST
  3. ALEVE [Suspect]
     Active Substance: NAPROXEN SODIUM
     Indication: PAIN
     Route: 048
     Dates: start: 201808
  4. LOSARTAN. [Concomitant]
     Active Substance: LOSARTAN

REACTIONS (2)
  - Incorrect product administration duration [Not Recovered/Not Resolved]
  - Product prescribing error [Not Recovered/Not Resolved]

NARRATIVE: CASE EVENT DATE: 2018
